FAERS Safety Report 5616105-3 (Version None)
Quarter: 2008Q1

REPORT INFORMATION
  Report Type: 
  Country: None (occurrence: None)
  Receive Date: 20080206
  Receipt Date: 20080125
  Transmission Date: 20080703
  Serious: Yes (Other)
  Sender: FDA-Public Use
  Company Number: US-PFIZER INC-2008007989

PATIENT
  Age: 34 Year
  Sex: Male

DRUGS (3)
  1. CHANTIX [Suspect]
  2. SEROQUEL [Interacting]
     Dosage: DAILY DOSE:325MG
  3. LAMICTAL [Interacting]

REACTIONS (5)
  - AGITATION [None]
  - DELUSION [None]
  - DRUG INTERACTION [None]
  - MEDICATION ERROR [None]
  - SOMNOLENCE [None]
